FAERS Safety Report 8302755 (Version 2)
Quarter: 2014Q1

REPORT INFORMATION
  Report Type: Spontaneous
  Country: US (occurrence: US)
  Receive Date: 20111220
  Receipt Date: 20140102
  Transmission Date: 20141002
  Serious: Yes (Hospitalization)
  Sender: FDA-Public Use
  Company Number: US-GLAXOSMITHKLINE-A0938873A

PATIENT
  Age: 55 Year
  Sex: Male
  Weight: 115.9 kg

DRUGS (1)
  1. AVANDIA [Suspect]
     Indication: DIABETES MELLITUS
     Route: 048
     Dates: start: 20000320, end: 2008

REACTIONS (4)
  - Cardiovascular disorder [Not Recovered/Not Resolved]
  - Myocardial infarction [Unknown]
  - Cardiac failure congestive [Unknown]
  - Coronary artery disease [Unknown]
